FAERS Safety Report 4299070-3 (Version None)
Quarter: 2004Q1

REPORT INFORMATION
  Report Type: 
  Country: None (occurrence: None)
  Receive Date: 20040217
  Receipt Date: 20040122
  Transmission Date: 20041129
  Serious: Yes (Hospitalization)
  Sender: FDA-Public Use
  Company Number: DSA_23924_2004

PATIENT
  Age: 54 Year
  Sex: Male

DRUGS (4)
  1. CEDAX [Suspect]
     Indication: PHARYNGOTONSILLITIS
     Dosage: 400 MG QD PO ORAL
     Route: 048
     Dates: start: 20040110, end: 20040110
  2. ATENOLOL [Concomitant]
  3. SIVASTIN [Concomitant]
  4. RAMIPRIL + HYDROCHLOROTHIAZIDE [Concomitant]

REACTIONS (2)
  - ANGIONEUROTIC OEDEMA [None]
  - URTICARIA [None]
